FAERS Safety Report 9805021 (Version 1)
Quarter: 2014Q1

REPORT INFORMATION
  Report Type: Report from Study
  Country: TR (occurrence: TR)
  Receive Date: 20140109
  Receipt Date: 20140109
  Transmission Date: 20141002
  Serious: Yes (Death)
  Sender: FDA-Public Use
  Company Number: TR-ROCHE-1328026

PATIENT
  Sex: 0

DRUGS (1)
  1. TRETINOIN [Suspect]
     Indication: NEUROBLASTOMA
     Route: 065

REACTIONS (1)
  - Death [Fatal]
